FAERS Safety Report 22130238 (Version 1)
Quarter: 2023Q1

REPORT INFORMATION
  Report Type: Spontaneous
  Country: US (occurrence: US)
  Receive Date: 20230323
  Receipt Date: 20230323
  Transmission Date: 20230418
  Serious: Yes (Hospitalization)
  Sender: FDA-Public Use
  Company Number: US-MYLANLABS-2023M1031260

PATIENT
  Age: 32 Year
  Sex: Male

DRUGS (6)
  1. ADENOSINE [Suspect]
     Active Substance: ADENOSINE
     Indication: Supraventricular tachycardia
     Dosage: UNK UNK, 2X ~(TWO TIMES)
     Route: 065
  2. DILTIAZEM [Suspect]
     Active Substance: DILTIAZEM
     Indication: Supraventricular tachycardia
     Dosage: UNK, IV PUSH
     Route: 042
  3. DILTIAZEM [Suspect]
     Active Substance: DILTIAZEM
     Dosage: UNK IV INFUSION
     Route: 042
  4. METOPROLOL [Concomitant]
     Active Substance: METOPROLOL
     Indication: Supraventricular tachycardia
     Dosage: IV PUSH
     Route: 042
  5. METOPROLOL [Concomitant]
     Active Substance: METOPROLOL
     Indication: Supraventricular tachycardia
     Dosage: UNK
     Route: 048
  6. FLECAINIDE [Concomitant]
     Active Substance: FLECAINIDE
     Indication: Supraventricular tachycardia
     Dosage: UNK, ONE DOSE
     Route: 065

REACTIONS (1)
  - Drug ineffective [Unknown]
